FAERS Safety Report 11715423 (Version 2)
Quarter: 2015Q4

REPORT INFORMATION
  Report Type: Report from Study
  Country: BR (occurrence: BR)
  Receive Date: 20151109
  Receipt Date: 20151207
  Transmission Date: 20160304
  Serious: Yes (Other)
  Sender: FDA-Public Use
  Company Number: PHHY2015BR143094

PATIENT
  Sex: Female
  Weight: 42 kg

DRUGS (3)
  1. EXFORGE HCT [Suspect]
     Active Substance: AMLODIPINE BESYLATE\HYDROCHLOROTHIAZIDE\VALSARTAN
     Indication: BLOOD PRESSURE INCREASED
     Dosage: 1 TABLET, QD (160 MG/10MG/12.5 MG)
     Route: 065
  2. FEMARA [Suspect]
     Active Substance: LETROZOLE
     Indication: PRODUCT USED FOR UNKNOWN INDICATION
     Dosage: UNK
     Route: 065
  3. DIOVAN [Suspect]
     Active Substance: VALSARTAN
     Indication: BLOOD PRESSURE INCREASED
     Dosage: 2 DF (80 MG), QD
     Route: 065

REACTIONS (5)
  - Breast cancer [Recovering/Resolving]
  - Chest pain [Unknown]
  - Emotional disorder [Unknown]
  - Coronary artery occlusion [Unknown]
  - Blood pressure increased [Recovering/Resolving]
